FAERS Safety Report 19639419 (Version 1)
Quarter: 2021Q3

REPORT INFORMATION
  Report Type: Report from Study
  Country: NL (occurrence: NL)
  Receive Date: 20210730
  Receipt Date: 20210730
  Transmission Date: 20211014
  Serious: Yes (Hospitalization, Other)
  Sender: FDA-Public Use
  Company Number: NVSC2021NL165327

PATIENT
  Sex: Female

DRUGS (3)
  1. SANDOSTATINE LAR [Suspect]
     Active Substance: OCTREOTIDE ACETATE
     Indication: NEUROENDOCRINE TUMOUR
     Dosage: UNK
     Route: 065
  2. SANDOSTATINE LAR [Suspect]
     Active Substance: OCTREOTIDE ACETATE
  3. SANDOSTATINE LAR [Suspect]
     Active Substance: OCTREOTIDE ACETATE

REACTIONS (4)
  - Gastrointestinal haemorrhage [Unknown]
  - Gastric ulcer [Unknown]
  - Haemoglobin decreased [Unknown]
  - Faeces discoloured [Unknown]
